FAERS Safety Report 24081501 (Version 2)
Quarter: 2024Q3

REPORT INFORMATION
  Report Type: Report from Study
  Country: CA (occurrence: CA)
  Receive Date: 20240712
  Receipt Date: 20240802
  Transmission Date: 20241017
  Serious: Yes (Hospitalization)
  Sender: HLS THERAPEUTICS
  Company Number: CA-HLS-202401655

PATIENT
  Age: 37 Year
  Sex: Female

DRUGS (1)
  1. CLOZARIL [Suspect]
     Active Substance: CLOZAPINE
     Indication: Product used for unknown indication
     Dosage: 100 MG TWICE DAILY
     Route: 048
     Dates: start: 20200604

REACTIONS (2)
  - Abscess drainage [Unknown]
  - Cellulitis [Unknown]

NARRATIVE: CASE EVENT DATE: 20240630
